FAERS Safety Report 23220889 (Version 1)
Quarter: 2023Q4

REPORT INFORMATION
  Report Type: Spontaneous
  Country: ES (occurrence: ES)
  Receive Date: 20231123
  Receipt Date: 20231123
  Transmission Date: 20240110
  Serious: Yes (Other)
  Sender: FDA-Public Use
  Company Number: ES-AstraZeneca-2023A260464

PATIENT

DRUGS (4)
  1. GOSERELIN [Suspect]
     Active Substance: GOSERELIN
     Indication: Intraductal proliferative breast lesion
     Dosage: UNK
     Route: 058
  2. ZOLADEX [Suspect]
     Active Substance: GOSERELIN ACETATE
     Indication: Intraductal proliferative breast lesion
     Dosage: UNK
     Route: 065
  3. FULVESTRANT [Suspect]
     Active Substance: FULVESTRANT
     Indication: Intraductal proliferative breast lesion
     Dosage: UNK
     Route: 030
     Dates: start: 20230602
  4. PALBOCICLIB [Suspect]
     Active Substance: PALBOCICLIB
     Indication: Intraductal proliferative breast lesion
     Dosage: UNK
     Route: 065
     Dates: start: 20230602

REACTIONS (3)
  - Metastases to bone [Unknown]
  - Metastases to spine [Unknown]
  - Osteosclerosis [Unknown]
